FAERS Safety Report 6442910-X (Version None)
Quarter: 2009Q4

REPORT INFORMATION
  Report Type: 
  Country: None (occurrence: None)
  Receive Date: 20091112
  Receipt Date: 20091105
  Transmission Date: 20100525
  Serious: Yes (Death)
  Sender: FDA-Public Use
  Company Number: A-US2009-28682

PATIENT
  Age: 40 Year
  Sex: Female

DRUGS (1)
  1. VENTAVIS     (ILOPROST) UNKNOWN [Suspect]
     Indication: DRUG USE FOR UNKNOWN INDICATION
     Dosage: RESPIRATORY
     Route: 055

REACTIONS (1)
  - DEATH [None]
